FAERS Safety Report 21622020 (Version 1)
Quarter: 2022Q4

REPORT INFORMATION
  Report Type: Spontaneous
  Country: IN (occurrence: IN)
  Receive Date: 20221121
  Receipt Date: 20221121
  Transmission Date: 20230113
  Serious: No
  Sender: FDA-Public Use
  Company Number: IN-PADAGIS-2022PAD00919

PATIENT

DRUGS (1)
  1. CLINDAMYCIN PHOSPHATE [Suspect]
     Active Substance: CLINDAMYCIN PHOSPHATE
     Indication: Erythrasma
     Dosage: BID (TWICE A DAY)
     Route: 061

REACTIONS (2)
  - Skin hyperpigmentation [Unknown]
  - Product use in unapproved indication [Unknown]
